FAERS Safety Report 24916182 (Version 2)
Quarter: 2025Q1

REPORT INFORMATION
  Report Type: Spontaneous
  Country: US (occurrence: US)
  Receive Date: 20250203
  Receipt Date: 20250205
  Transmission Date: 20250409
  Serious: Yes (Hospitalization, Other)
  Sender: PFIZER
  Company Number: US-ABBVIE-6067405

PATIENT
  Age: 78 Year
  Sex: Female

DRUGS (2)
  1. ADALIMUMAB [Suspect]
     Active Substance: ADALIMUMAB
     Indication: Rheumatoid arthritis
  2. PREDNISONE [Suspect]
     Active Substance: PREDNISONE
     Indication: Rheumatoid arthritis

REACTIONS (5)
  - Pseudomonas infection [Unknown]
  - Urinary tract infection pseudomonal [Unknown]
  - Mycobacterium chelonae infection [Unknown]
  - Pneumonia aspiration [Unknown]
  - Metabolic encephalopathy [Unknown]
